FAERS Safety Report 25854522 (Version 2)
Quarter: 2025Q4

REPORT INFORMATION
  Report Type: Spontaneous
  Country: TR (occurrence: TR)
  Receive Date: 20250927
  Receipt Date: 20251017
  Transmission Date: 20260117
  Serious: Yes (Life-Threatening, Other)
  Sender: ABBVIE
  Company Number: TR-ABBVIE-6479749

PATIENT
  Age: 48 Year
  Sex: Female

DRUGS (3)
  1. RINVOQ [Suspect]
     Active Substance: UPADACITINIB
     Indication: Dermatitis atopic
     Route: 048
     Dates: start: 20250225, end: 20250815
  2. RINVOQ [Suspect]
     Active Substance: UPADACITINIB
     Indication: Dermatitis atopic
     Route: 048
     Dates: start: 20250815, end: 20251010
  3. RINVOQ [Suspect]
     Active Substance: UPADACITINIB
     Indication: Dermatitis atopic
     Dosage: FREQUENCY TEXT: EVERY OTHER DAY
     Route: 048
     Dates: start: 20251010

REACTIONS (4)
  - Hypertension [Recovered/Resolved]
  - Constipation [Recovered/Resolved]
  - Nail discolouration [Not Recovered/Not Resolved]
  - Nail disorder [Not Recovered/Not Resolved]

NARRATIVE: CASE EVENT DATE: 20250101
